FAERS Safety Report 6802619-7 (Version None)
Quarter: 2010Q2

REPORT INFORMATION
  Report Type: 
  Country: None (occurrence: None)
  Receive Date: 20100628
  Receipt Date: 20100617
  Transmission Date: 20101027
  Serious: No
  Sender: FDA-Public Use
  Company Number: US-JNJFOC-20100606131

PATIENT
  Sex: Female
  Weight: 105.24 kg

DRUGS (15)
  1. DURAGESIC-100 [Suspect]
     Indication: PAIN
     Route: 062
  2. DURAGESIC-100 [Suspect]
     Route: 062
  3. DURAGESIC-100 [Suspect]
     Route: 062
  4. FENTANYL-100 [Suspect]
     Indication: PAIN
     Route: 062
  5. AMBIEN [Suspect]
     Indication: SLEEP DISORDER
     Route: 048
  6. PERCOCET [Concomitant]
     Indication: PAIN
     Route: 048
  7. BENICAR [Concomitant]
     Indication: BLOOD PRESSURE
     Route: 048
  8. ZETIA [Concomitant]
     Indication: BLOOD CHOLESTEROL
     Route: 048
  9. PLAVIX [Concomitant]
     Indication: ANTICOAGULANT THERAPY
     Route: 048
  10. CARDIZEM [Concomitant]
     Indication: BLOOD PRESSURE
     Route: 048
  11. CARDIZEM [Concomitant]
     Indication: HEART RATE
     Route: 048
  12. LIPITOR [Concomitant]
     Indication: BLOOD CHOLESTEROL
     Route: 048
  13. FOLIC ACID [Concomitant]
     Indication: DRUG USE FOR UNKNOWN INDICATION
     Route: 048
  14. ZOLOFT [Concomitant]
     Indication: DRUG USE FOR UNKNOWN INDICATION
     Route: 048
  15. PROAIR HFA [Concomitant]
     Indication: ASTHMA
     Route: 055

REACTIONS (6)
  - INAPPROPRIATE SCHEDULE OF DRUG ADMINISTRATION [None]
  - NAUSEA [None]
  - OVERDOSE [None]
  - PRODUCT QUALITY ISSUE [None]
  - VOMITING [None]
  - WEIGHT INCREASED [None]
